FAERS Safety Report 8448323-3 (Version None)
Quarter: 2012Q2

REPORT INFORMATION
  Report Type: 
  Country: None (occurrence: None)
  Receive Date: 20120619
  Receipt Date: 20120612
  Transmission Date: 20120825
  Serious: No
  Sender: FDA-Public Use
  Company Number: US-PFIZER INC-2012111369

PATIENT
  Sex: Male

DRUGS (1)
  1. XALATAN [Suspect]
     Indication: GLAUCOMA
     Dosage: AT BED TIME EVERY DAY
     Route: 061
     Dates: end: 20120401

REACTIONS (4)
  - EYE IRRITATION [None]
  - DRY EYE [None]
  - DRUG HYPERSENSITIVITY [None]
  - OCULAR HYPERAEMIA [None]
